FAERS Safety Report 4783970-1 (Version None)
Quarter: 2005Q3

REPORT INFORMATION
  Report Type: 
  Country: None (occurrence: None)
  Receive Date: 20050927
  Receipt Date: 20050803
  Transmission Date: 20060218
  Serious: No
  Sender: FDA-Public Use
  Company Number: USA0508104543

PATIENT
  Age: 67 Year
  Sex: Female

DRUGS (3)
  1. STRATTERA [Suspect]
     Dates: start: 20050701
  2. TAMOXIFEN [Concomitant]
  3. GLUCOSAMINE [Concomitant]

REACTIONS (1)
  - CONTUSION [None]
